FAERS Safety Report 4843566-X (Version None)
Quarter: 2005Q4

REPORT INFORMATION
  Report Type: 
  Country: None (occurrence: None)
  Receive Date: 20051202
  Receipt Date: 20051124
  Transmission Date: 20060501
  Serious: Yes (Other)
  Sender: FDA-Public Use
  Company Number: DK-ABBOTT-05P-044-0318107-00

PATIENT
  Age: 91 Year
  Sex: Female

DRUGS (7)
  1. ODRIK [Suspect]
     Indication: CARDIAC FAILURE
     Route: 048
     Dates: start: 20020101, end: 20051007
  2. FUROSEMIDE [Concomitant]
     Indication: DRUG USE FOR UNKNOWN INDICATION
  3. POTASSIUM CHLORIDE [Concomitant]
     Indication: DRUG USE FOR UNKNOWN INDICATION
  4. SPIRONOLACTONE [Concomitant]
     Indication: DRUG USE FOR UNKNOWN INDICATION
  5. METOPROLOL [Concomitant]
     Indication: DRUG USE FOR UNKNOWN INDICATION
  6. ZARATOR [Concomitant]
     Indication: DRUG USE FOR UNKNOWN INDICATION
  7. FERN MONO RETARD [Concomitant]
     Indication: DRUG USE FOR UNKNOWN INDICATION

REACTIONS (2)
  - BLOOD CREATININE INCREASED [None]
  - RENAL ARTERY STENOSIS [None]
